FAERS Safety Report 10363807 (Version 2)
Quarter: 2014Q3

REPORT INFORMATION
  Report Type: Spontaneous
  Country: FR (occurrence: None)
  Receive Date: 20140801
  Receipt Date: 20140819
  Transmission Date: 20150326
  Serious: Yes (Hospitalization)
  Sender: FDA-Public Use
  Company Number: AXC-2014-000469

PATIENT
  Age: 62 Year
  Sex: Female
  Weight: 47 kg

DRUGS (11)
  1. PYLERA [Suspect]
     Active Substance: BISMUTH SUBCITRATE POTASSIUM\METRONIDAZOLE\TETRACYCLINE HYDROCHLORIDE
     Indication: HELICOBACTER INFECTION
     Route: 048
     Dates: start: 20140319, end: 20140321
  2. KARDEGIC (ACETYLSALICYLATE LYSINE) UNKNOWN [Concomitant]
  3. PRIMPERAN (METOCLOPRAMIDE HYDROCHLORIDE) TABLET [Concomitant]
  4. OMEPRAZOLE (OMEPRAZOLE) TABLET [Concomitant]
  5. NEORAL [Concomitant]
     Active Substance: CYCLOSPORINE
  6. DOLIPRANE (PARACETAMOL) TABLET [Concomitant]
  7. GAVISCON /00237601/ (ALGINIC ACID, ALUMINIUM HYDROXIDE GEL, DRIED, MAGNESIUM TRISILICATE, SODIUM ALGINATE, SODIUM BICARBONATE) UNKNOWN [Concomitant]
  8. DELURSAN [Suspect]
     Active Substance: URSODIOL
     Indication: PRODUCT USED FOR UNKNOWN INDICATION
  9. CERTICAN (EVEROLIMUS) UNKNOWN [Concomitant]
  10. AMLODIPINE (AMLODIPINE) CAPSULE [Concomitant]
  11. HYDROCORTISON /00028601/ (HYDROCORTISONE) TABLET [Concomitant]

REACTIONS (3)
  - Melaena [None]
  - Vomiting [None]
  - Haematochezia [None]

NARRATIVE: CASE EVENT DATE: 20140320
